FAERS Safety Report 24234323 (Version 1)
Quarter: 2024Q3

REPORT INFORMATION
  Report Type: Spontaneous
  Country: US (occurrence: US)
  Receive Date: 20240821
  Receipt Date: 20240821
  Transmission Date: 20241016
  Serious: No
  Sender: TAKEDA
  Company Number: US-TAKEDA-2024TUS083454

PATIENT

DRUGS (1)
  1. VYVANSE [Suspect]
     Active Substance: LISDEXAMFETAMINE DIMESYLATE
     Indication: Product used for unknown indication
     Dosage: 40 MILLIGRAM
     Route: 065
     Dates: start: 20240806

REACTIONS (4)
  - Heart rate decreased [Unknown]
  - Incorrect dose administered [Unknown]
  - Amphetamines positive [Unknown]
  - Product quality issue [Unknown]

NARRATIVE: CASE EVENT DATE: 20240811
